APPROVED DRUG PRODUCT: DARVON COMPOUND-65
Active Ingredient: ASPIRIN; CAFFEINE; PROPOXYPHENE HYDROCHLORIDE
Strength: 389MG;32.4MG;65MG
Dosage Form/Route: CAPSULE;ORAL
Application: N010996 | Product #007
Applicant: XANODYNE PHARMACEUTICS INC
Approved: Mar 8, 1983 | RLD: No | RS: No | Type: DISCN